FAERS Safety Report 23485221 (Version 1)
Quarter: 2024Q1

REPORT INFORMATION
  Report Type: Spontaneous
  Country: US (occurrence: US)
  Receive Date: 20240206
  Receipt Date: 20240206
  Transmission Date: 20240410
  Serious: No
  Sender: FDA-Public Use
  Company Number: US-SA-SAC20240127000157

PATIENT
  Age: 47 Year
  Sex: Female
  Weight: 75.75 kg

DRUGS (6)
  1. DUPIXENT [Suspect]
     Active Substance: DUPILUMAB
     Indication: Dermatitis atopic
     Dosage: 300 MG, QOW
     Route: 058
  2. PROTONIX [Concomitant]
     Active Substance: PANTOPRAZOLE SODIUM
  3. PHENTERMINE HYDROCHLORIDE [Concomitant]
     Active Substance: PHENTERMINE HYDROCHLORIDE
  4. ESTRADIOL [Concomitant]
     Active Substance: ESTRADIOL
     Dosage: 0.5MG/0.5G
  5. EPIPEN [Concomitant]
     Active Substance: EPINEPHRINE
     Dosage: EPIPEN 2-PAK 0.3MG/0.3 AUTO INJCT
  6. NAPROXEN [Concomitant]
     Active Substance: NAPROXEN

REACTIONS (4)
  - Erythema [Unknown]
  - Swelling face [Unknown]
  - Rash [Unknown]
  - Therapeutic response shortened [Unknown]
